FAERS Safety Report 24721908 (Version 1)
Quarter: 2024Q4

REPORT INFORMATION
  Report Type: Spontaneous
  Country: US (occurrence: None)
  Receive Date: 20241211
  Receipt Date: 20241211
  Transmission Date: 20250114
  Serious: Yes (Hospitalization)
  Sender: Public
  Company Number: None

PATIENT
  Age: 62 Year
  Sex: Male

DRUGS (8)
  1. ENBREL [Suspect]
     Active Substance: ETANERCEPT
     Indication: Psoriatic arthropathy
  2. METFORMIN HYDROCHLORIDE [Concomitant]
     Active Substance: METFORMIN HYDROCHLORIDE
  3. XANAX [Concomitant]
     Active Substance: ALPRAZOLAM
  4. AMBIEN [Concomitant]
     Active Substance: ZOLPIDEM TARTRATE
  5. ZOLPIDEM TARTRATE [Concomitant]
     Active Substance: ZOLPIDEM TARTRATE
  6. IBUPROFEN [Concomitant]
     Active Substance: IBUPROFEN
  7. ALPRAZOLAM ER [Concomitant]
     Active Substance: ALPRAZOLAM
  8. ACETAMINOPHEN\HYDROCODONE [Concomitant]
     Active Substance: ACETAMINOPHEN\HYDROCODONE

REACTIONS (2)
  - Gastric operation [None]
  - Therapy interrupted [None]

NARRATIVE: CASE EVENT DATE: 20241210
